FAERS Safety Report 10015380 (Version 1)
Quarter: 2014Q1

REPORT INFORMATION
  Report Type: Spontaneous
  Country: US (occurrence: US)
  Receive Date: 20140317
  Receipt Date: 20140317
  Transmission Date: 20141002
  Serious: No
  Sender: FDA-Public Use
  Company Number: US-PFIZER INC-2014076623

PATIENT
  Age: 64 Year
  Sex: Female
  Weight: 68 kg

DRUGS (3)
  1. GABAPENTIN [Suspect]
     Indication: ARNOLD-CHIARI MALFORMATION
     Dosage: UNK
  2. GABAPENTIN [Suspect]
     Indication: NERVE INJURY
  3. NORCO [Suspect]
     Indication: NEURALGIA
     Dosage: UNK

REACTIONS (1)
  - Drug ineffective [Unknown]
